FAERS Safety Report 16171366 (Version 1)
Quarter: 2019Q2

REPORT INFORMATION
  Report Type: Spontaneous
  Country: US (occurrence: US)
  Receive Date: 20190408
  Receipt Date: 20190408
  Transmission Date: 20190711
  Serious: No
  Sender: FDA-Public Use
  Company Number: US-TARO-2019TAR00157

PATIENT
  Age: 85 Year
  Sex: Male

DRUGS (4)
  1. FLUOROURACIL TOPICAL CREAM USP 5% [Suspect]
     Active Substance: FLUOROURACIL
     Dosage: UNK UNK, 1X/DAY AT NIGHT
     Route: 061
     Dates: start: 201901
  2. UNSPECIFED HIGH BLOOD PRESSURE PILLS [Concomitant]
     Dosage: UNK
  3. UNSPECIFIED BLOOD THINNERS [Concomitant]
  4. CALCIPOTRIENE (GLENMARK) [Suspect]
     Active Substance: CALCIPOTRIENE
     Indication: BASAL CELL CARCINOMA
     Dosage: UNK, 1X/DAY IN THE MORNING
     Route: 061
     Dates: start: 201901

REACTIONS (3)
  - Inappropriate schedule of product administration [Unknown]
  - Pallor [Unknown]
  - Burning sensation [Unknown]

NARRATIVE: CASE EVENT DATE: 2019
